FAERS Safety Report 5218061-9 (Version None)
Quarter: 2007Q1

REPORT INFORMATION
  Report Type: 
  Country: None (occurrence: None)
  Receive Date: 20061130
  Receipt Date: 20060901
  Transmission Date: 20070707
  Serious: Yes (Hospitalization)
  Sender: FDA-Public Use
  Company Number: US200609001467

PATIENT
  Age: 44 Year
  Sex: Male
  Weight: 90.2 kg

DRUGS (5)
  1. ZYPREXA [Suspect]
     Indication: DEPRESSION
     Dates: start: 19980101, end: 20000101
  2. CLOZAPINE [Concomitant]
  3. DEPAKOTE [Concomitant]
  4. BUPROPION HCL [Concomitant]
  5. ... [Concomitant]

REACTIONS (4)
  - BLOOD GLUCOSE INCREASED [None]
  - DIABETES MELLITUS [None]
  - METABOLIC DISORDER [None]
  - OBESITY [None]
